FAERS Safety Report 8693566 (Version 5)
Quarter: 2013Q3

REPORT INFORMATION
  Report Type: Spontaneous
  Country: AR (occurrence: AR)
  Receive Date: 20120731
  Receipt Date: 20130927
  Transmission Date: 20140515
  Serious: Yes (Hospitalization, Other)
  Sender: FDA-Public Use
  Company Number: AR-AMGEN-ARGSP2012046351

PATIENT
  Age: 60 Year
  Sex: Female

DRUGS (1)
  1. ENBREL [Suspect]
     Indication: PSORIATIC ARTHROPATHY
     Dosage: 50 MG, 2X/WEEK
     Route: 058
     Dates: start: 20070909, end: 201209

REACTIONS (4)
  - Mania [Recovering/Resolving]
  - Skin disorder [Not Recovered/Not Resolved]
  - Gastrointestinal necrosis [Recovered/Resolved]
  - Bipolar disorder [Recovering/Resolving]
